FAERS Safety Report 5030684-9 (Version None)
Quarter: 2006Q2

REPORT INFORMATION
  Report Type: 
  Country: None (occurrence: None)
  Receive Date: 20060615
  Receipt Date: 20060607
  Transmission Date: 20061013
  Serious: Yes (Hospitalization, Other)
  Sender: FDA-Public Use
  Company Number: 2006068695

PATIENT
  Age: 38 Year
  Sex: Female
  Weight: 97 kg

DRUGS (8)
  1. LYRICA [Suspect]
     Indication: PAIN
     Dosage: 150 MG (75 MG, 2 IN 1 D), ORAL
     Route: 048
     Dates: start: 20041005
  2. ANALGESICS [Concomitant]
  3. SANOMIGRAN (PIZOTIFEN MALEATE) [Concomitant]
  4. TRAMADOL HCL [Concomitant]
  5. IBUPROFEN [Concomitant]
  6. CYCLIZINE [Concomitant]
  7. LANSOPRAZOLE [Concomitant]
  8. AMITRIPTYLINE HCL [Concomitant]

REACTIONS (1)
  - MYOCARDIAL INFARCTION [None]
